FAERS Safety Report 5642349-0 (Version None)
Quarter: 2008Q1

REPORT INFORMATION
  Report Type: 
  Country: None (occurrence: None)
  Receive Date: 20080131
  Receipt Date: 20070718
  Transmission Date: 20080703
  Serious: No
  Sender: FDA-Public Use
  Company Number: 163-20785-07070967

PATIENT
  Sex: Female

DRUGS (2)
  1. THALOMID [Suspect]
     Indication: MULTIPLE MYELOMA
     Dosage: ORAL ; 50 MG, DAILY ORAL
     Route: 048
  2. REVLIMID [Suspect]
     Indication: MULTIPLE MYELOMA
     Dosage: 15-25 MG, DAILY, ORAL
     Route: 048

REACTIONS (5)
  - HYPERSENSITIVITY [None]
  - PRURITUS [None]
  - PYREXIA [None]
  - RASH [None]
  - URTICARIA [None]
